FAERS Safety Report 13864727 (Version 1)
Quarter: 2017Q3

REPORT INFORMATION
  Report Type: Spontaneous
  Country: US (occurrence: None)
  Receive Date: 20170811
  Receipt Date: 20170811
  Transmission Date: 20171127
  Serious: No
  Sender: FDA-Public Use
  Company Number: None

PATIENT
  Age: 55 Year
  Sex: Female

DRUGS (1)
  1. FORTEO [Suspect]
     Active Substance: TERIPARATIDE
     Route: 058
     Dates: start: 20160101

REACTIONS (3)
  - Thyroid calcification [None]
  - Hypercalcaemia [None]
  - Nausea [None]

NARRATIVE: CASE EVENT DATE: 20170701
